FAERS Safety Report 22646015 (Version 1)
Quarter: 2023Q2

REPORT INFORMATION
  Report Type: Spontaneous
  Country: PL (occurrence: PL)
  Receive Date: 20230627
  Receipt Date: 20230627
  Transmission Date: 20230721
  Serious: Yes (Other)
  Sender: FDA-Public Use
  Company Number: None

PATIENT
  Age: 49 Year
  Sex: Female
  Weight: 56 kg

DRUGS (1)
  1. METFORMIN [Suspect]
     Active Substance: METFORMIN HYDROCHLORIDE
     Indication: Type 2 diabetes mellitus
     Dosage: UNK (DOSAGE SCHEDULE 2 X 500; DOSE UNIT UNKNOWN)
     Route: 048
     Dates: start: 20191217, end: 20191218

REACTIONS (1)
  - Hepatotoxicity [Recovered/Resolved]
